FAERS Safety Report 7531604-5 (Version None)
Quarter: 2011Q2

REPORT INFORMATION
  Report Type: 
  Country: None (occurrence: None)
  Receive Date: 20110607
  Receipt Date: 20110607
  Transmission Date: 20111010
  Serious: No
  Sender: FDA-Public Use
  Company Number: None

PATIENT
  Sex: Male
  Weight: 104.3273 kg

DRUGS (3)
  1. ADDERALL 10 [Suspect]
  2. DEXEDRINE [Suspect]
  3. FOCALIN [Suspect]
     Indication: ATTENTION DEFICIT/HYPERACTIVITY DISORDER
     Dosage: VARIOUS DAILY PO
     Route: 048
     Dates: start: 20080101, end: 20110511

REACTIONS (1)
  - NO ADVERSE EVENT [None]
